FAERS Safety Report 9892136 (Version 1)
Quarter: 2014Q1

REPORT INFORMATION
  Report Type: Spontaneous
  Country: FR (occurrence: FR)
  Receive Date: 20140212
  Receipt Date: 20140212
  Transmission Date: 20141002
  Serious: Yes (Hospitalization)
  Sender: FDA-Public Use
  Company Number: FR-ASTRAZENECA-2014SE09125

PATIENT
  Age: 22500 Day
  Sex: Female

DRUGS (6)
  1. INEXIUM [Suspect]
     Route: 048
     Dates: start: 20140115, end: 20140117
  2. PROFENID [Suspect]
     Route: 041
     Dates: start: 20140115, end: 20140117
  3. PRIMPERAN [Suspect]
     Route: 048
     Dates: start: 20140114, end: 20140117
  4. OXYCONTIN SR [Concomitant]
     Route: 048
     Dates: start: 20140115
  5. PARACETAMOL [Concomitant]
     Route: 048
     Dates: start: 20140114
  6. LOVENOX [Concomitant]
     Route: 058
     Dates: start: 20140115

REACTIONS (3)
  - Neutropenia [Recovered/Resolved]
  - Leukopenia [Recovered/Resolved]
  - Platelet count decreased [Recovered/Resolved]
